FAERS Safety Report 5167493-6 (Version None)
Quarter: 2006Q4

REPORT INFORMATION
  Report Type: 
  Country: None (occurrence: None)
  Receive Date: 20061130
  Receipt Date: 20061115
  Transmission Date: 20070319
  Serious: Yes (Other)
  Sender: FDA-Public Use
  Company Number: GXKR2006DE07457

PATIENT
  Sex: Male

DRUGS (1)
  1. OMEPRAZOLE [Suspect]
     Dosage: ORAL
     Route: 048

REACTIONS (3)
  - BLOOD CHROMOGRANIN A INCREASED [None]
  - NEUROENDOCRINE TUMOUR [None]
  - RECTAL NEOPLASM [None]
